FAERS Safety Report 7568737-3 (Version None)
Quarter: 2011Q2

REPORT INFORMATION
  Report Type: 
  Country: None (occurrence: None)
  Receive Date: 20110617
  Receipt Date: 20110603
  Transmission Date: 20111010
  Serious: Yes (Hospitalization)
  Sender: FDA-Public Use
  Company Number: JP-2011-10599

PATIENT
  Age: 86 Year
  Sex: Female
  Weight: 56.9 kg

DRUGS (6)
  1. PLETAL [Suspect]
     Indication: CEREBRAL INFARCTION
     Dosage: 100 MG MILLIGRAM(S), BID, ORAL
     Route: 048
     Dates: start: 20110101, end: 20110404
  2. DIOVAN [Concomitant]
  3. ALDACTONE [Concomitant]
  4. LASIX [Concomitant]
  5. TAMBOCOR [Concomitant]
  6. TAKEPRON (LANSOPRAZOLE) ORODISPERSIBLE TABLET, 15MG MILLIGRAM [Suspect]
     Indication: GASTRIC ULCER
     Dosage: 15 MG MILLIGRAM(S), QD, ORAL
     Route: 048
     Dates: start: 20110101, end: 20110404

REACTIONS (5)
  - HERPES ZOSTER [None]
  - DECREASED APPETITE [None]
  - NAUSEA [None]
  - PYREXIA [None]
  - GRANULOCYTOPENIA [None]
